FAERS Safety Report 10903966 (Version 1)
Quarter: 2015Q1

REPORT INFORMATION
  Report Type: Spontaneous
  Country: US (occurrence: None)
  Receive Date: 20150304
  Receipt Date: 20150304
  Transmission Date: 20150721
  Serious: No
  Sender: FDA-Public Use
  Company Number: None

PATIENT

DRUGS (2)
  1. ONDANSETRON [Suspect]
     Active Substance: ONDANSETRON
  2. SUMATRIPTAN. [Suspect]
     Active Substance: SUMATRIPTAN

REACTIONS (2)
  - Product packaging confusion [None]
  - Intercepted drug administration error [None]

NARRATIVE: CASE EVENT DATE: 20150303
